FAERS Safety Report 20771089 (Version 1)
Quarter: 2022Q2

REPORT INFORMATION
  Report Type: Spontaneous
  Country: US (occurrence: None)
  Receive Date: 20220429
  Receipt Date: 20220429
  Transmission Date: 20220721
  Serious: No
  Sender: FDA-Public Use
  Company Number: None

PATIENT
  Age: 83 Year
  Sex: Male
  Weight: 80.74 kg

DRUGS (16)
  1. MEKTOVI [Suspect]
     Active Substance: BINIMETINIB
     Indication: Malignant melanoma
     Dosage: FREQUENCY : EVERY 12 HOURS;?
     Route: 048
  2. BRAFTOVI [Suspect]
     Active Substance: ENCORAFENIB
     Indication: Malignant melanoma
     Dosage: FREQUENCY : DAILY;?
     Route: 048
  3. ASPIRIN [Concomitant]
     Active Substance: ASPIRIN
  4. CIMETIDINE [Concomitant]
     Active Substance: CIMETIDINE
  5. FISH OIL [Concomitant]
     Active Substance: FISH OIL
  6. FOLIC ACID [Concomitant]
     Active Substance: FOLIC ACID
  7. ACETAMINOPHEN\HYDROCODONE [Concomitant]
     Active Substance: ACETAMINOPHEN\HYDROCODONE
  8. MELOXICAM [Concomitant]
     Active Substance: MELOXICAM
  9. MESALAMINE [Concomitant]
     Active Substance: MESALAMINE
  10. MYCOPHENOLIC ACID [Concomitant]
     Active Substance: MYCOPHENOLIC ACID
  11. PLAVIX [Concomitant]
     Active Substance: CLOPIDOGREL BISULFATE
  12. PREDNISONE [Concomitant]
     Active Substance: PREDNISONE
  13. PROBIOTIC-PREBIOTIC [Concomitant]
  14. PROCHLORPERAZINE [Concomitant]
     Active Substance: PROCHLORPERAZINE
  15. TRAZODONE [Concomitant]
     Active Substance: TRAZODONE HYDROCHLORIDE
  16. VITTAMIN B COMPLEX-C [Concomitant]

REACTIONS (4)
  - Haemorrhage [None]
  - Internal haemorrhage [None]
  - Haemoglobin decreased [None]
  - Therapy interrupted [None]
